FAERS Safety Report 15033797 (Version 1)
Quarter: 2018Q2

REPORT INFORMATION
  Report Type: Spontaneous
  Country: US (occurrence: US)
  Receive Date: 20180529
  Receipt Date: 20180529
  Transmission Date: 20180711
  Serious: No
  Sender: FDA-Public Use
  Company Number: None

PATIENT
  Age: 38 Year
  Sex: Female

DRUGS (1)
  1. ARANESP [Suspect]
     Active Substance: DARBEPOETIN ALFA
     Dates: start: 20180130, end: 20180529

REACTIONS (2)
  - Seasonal allergy [None]
  - Rhinorrhoea [None]

NARRATIVE: CASE EVENT DATE: 20180528
